FAERS Safety Report 7313674-2 (Version None)
Quarter: 2011Q1

REPORT INFORMATION
  Report Type: 
  Country: None (occurrence: None)
  Receive Date: 20110225
  Receipt Date: 20110221
  Transmission Date: 20110831
  Serious: Yes (Other)
  Sender: FDA-Public Use
  Company Number: US-PFIZER INC-2011009005

PATIENT
  Sex: Male
  Weight: 84 kg

DRUGS (10)
  1. TYLENOL [Concomitant]
     Indication: BACK PAIN
     Dosage: 650 MG, 5X/DAY
     Route: 048
  2. OXYCODONE [Concomitant]
     Indication: BACK PAIN
     Dosage: 10 MG, UNK
     Route: 048
  3. CHANTIX [Suspect]
     Indication: SMOKING CESSATION THERAPY
     Dosage: 0.5 MG, 1X/DAY
     Route: 048
     Dates: start: 20110101, end: 20110101
  4. SEROQUEL [Interacting]
     Dosage: UNK
  5. ASENAPINE [Concomitant]
     Dosage: UNK, 2X/DAY
     Route: 060
  6. CHANTIX [Interacting]
     Dosage: 1 MG, 2X/DAY
     Route: 048
     Dates: start: 20110101
  7. SEROQUEL [Interacting]
     Dosage: UNK, 2X/DAY
     Route: 048
  8. PERCOCET [Concomitant]
     Indication: BACK PAIN
     Dosage: 100 MG, 5X/DAY
     Route: 048
  9. ROZEREM [Concomitant]
     Dosage: 8 MG, 1X/DAY
  10. XANAX [Concomitant]
     Dosage: UNK, 3X/DAY

REACTIONS (3)
  - PAIN IN EXTREMITY [None]
  - DRUG INTERACTION [None]
  - MYALGIA [None]
